FAERS Safety Report 6743739-5 (Version None)
Quarter: 2010Q2

REPORT INFORMATION
  Report Type: 
  Country: None (occurrence: None)
  Receive Date: 20100527
  Receipt Date: 20100519
  Transmission Date: 20101027
  Serious: Yes (Other)
  Sender: FDA-Public Use
  Company Number: FR-SANOFI-AVENTIS-2010SA018284

PATIENT
  Age: 86 Year
  Sex: Female

DRUGS (8)
  1. NASACORT [Suspect]
     Indication: CHRONIC SINUSITIS
  2. NASONEX [Suspect]
     Indication: CHRONIC SINUSITIS
     Dosage: DOSE:2 UNIT(S)
     Route: 065
     Dates: start: 20080422, end: 20080724
  3. IPERTEN [Concomitant]
     Indication: DRUG USE FOR UNKNOWN INDICATION
     Dosage: DOSE:1 UNIT(S)
     Route: 048
     Dates: start: 20080310
  4. VALSARTAN/HYDROCHLOROTHIAZIDE [Concomitant]
     Dosage: DOSE:1 UNIT(S)
     Route: 048
     Dates: start: 20080319
  5. ALENDRONIC ACID [Concomitant]
     Indication: DRUG USE FOR UNKNOWN INDICATION
     Dosage: DOSE:1 UNIT(S)
     Route: 048
     Dates: start: 20080312
  6. RIVOTRIL [Concomitant]
     Indication: DRUG USE FOR UNKNOWN INDICATION
     Route: 048
     Dates: start: 20080310
  7. LASIX [Concomitant]
     Route: 048
     Dates: start: 20080310
  8. BECLOMETHASONE DIPROPIONATE [Concomitant]
     Dosage: DOSE:1 UNIT(S)
     Route: 065
     Dates: start: 20080630

REACTIONS (1)
  - TRANSIENT ISCHAEMIC ATTACK [None]
